FAERS Safety Report 11076631 (Version 4)
Quarter: 2015Q2

REPORT INFORMATION
  Report Type: Report from Study
  Country: DE (occurrence: DE)
  Receive Date: 20150429
  Receipt Date: 20150623
  Transmission Date: 20150821
  Serious: Yes (Death, Hospitalization)
  Sender: FDA-Public Use
  Company Number: DE-ABBVIE-15P-062-1380325-00

PATIENT
  Age: 62 Year
  Sex: Male

DRUGS (3)
  1. DUODOPA [Suspect]
     Active Substance: CARBIDOPA\LEVODOPA
     Dosage: MD 11 ML, CRD 3.9 ML/HR, ED 3 ML
     Route: 050
     Dates: start: 20100908
  2. DUODOPA [Suspect]
     Active Substance: CARBIDOPA\LEVODOPA
     Indication: PARKINSON^S DISEASE
     Route: 050
     Dates: start: 200908
  3. EXELON [Concomitant]
     Active Substance: RIVASTIGMINE TARTRATE
     Indication: PRODUCT USED FOR UNKNOWN INDICATION
     Route: 062
     Dates: start: 20101201

REACTIONS (6)
  - Sepsis [Fatal]
  - Anxiety [Fatal]
  - General physical health deterioration [Fatal]
  - Malaise [Fatal]
  - Disorientation [Fatal]
  - Pyrexia [Fatal]

NARRATIVE: CASE EVENT DATE: 20120213
